FAERS Safety Report 10239144 (Version 1)
Quarter: 2014Q2

REPORT INFORMATION
  Report Type: Spontaneous
  Country: US (occurrence: US)
  Receive Date: 20140616
  Receipt Date: 20140616
  Transmission Date: 20141212
  Serious: Yes (Other)
  Sender: FDA-Public Use
  Company Number: US-ENDO PHARMACEUTICALS INC.-OPIR20130018

PATIENT
  Age: 32 Year
  Sex: Female

DRUGS (6)
  1. OPANA [Suspect]
     Indication: DRUG DEPENDENCE
     Dosage: UNKNOWN
     Route: 048
  2. OPANA [Suspect]
     Indication: DRUG ABUSE
  3. XANAX [Suspect]
     Indication: DRUG DEPENDENCE
     Dosage: UNKNOWN
     Route: 048
  4. XANAX [Suspect]
     Indication: DRUG ABUSE
  5. METHADONE [Suspect]
     Indication: DRUG DEPENDENCE
     Dosage: UNKNOWN
     Route: 048
  6. METHADONE [Suspect]
     Indication: DRUG ABUSE

REACTIONS (1)
  - Drug abuse [Unknown]
